FAERS Safety Report 7141175-3 (Version None)
Quarter: 2010Q4

REPORT INFORMATION
  Report Type: 
  Country: None (occurrence: None)
  Receive Date: 20101122
  Receipt Date: 20101108
  Transmission Date: 20110411
  Serious: Yes (Death, Hospitalization)
  Sender: FDA-Public Use
  Company Number: DSJ-2010-20119

PATIENT
  Age: 83 Year
  Sex: Male

DRUGS (1)
  1. BENICAR [Suspect]
     Indication: HYPERTENSION
     Dosage: (1 IN 1  D), PER ORAL
     Route: 048

REACTIONS (2)
  - CARDIAC ARREST [None]
  - COLECTOMY [None]
